FAERS Safety Report 9892335 (Version 1)
Quarter: 2014Q1

REPORT INFORMATION
  Report Type: Spontaneous
  Country: US (occurrence: US)
  Receive Date: 20140212
  Receipt Date: 20140212
  Transmission Date: 20141002
  Serious: Yes (Hospitalization)
  Sender: FDA-Public Use
  Company Number: US-FRI-1000053957

PATIENT
  Sex: Female

DRUGS (7)
  1. VIIBRYD [Suspect]
     Indication: DEPRESSION
     Dosage: 10MG
     Route: 048
     Dates: start: 201310
  2. VIIBRYD [Suspect]
     Dosage: 20MG
     Route: 048
  3. VIIBRYD [Suspect]
     Dosage: 40MG
     Route: 048
     Dates: end: 20140123
  4. ASPIRIN [Concomitant]
     Dosage: 81MG
  5. BYSTOLIC [Concomitant]
     Dosage: 5MG
     Route: 048
  6. CHLORTHALIDONE [Concomitant]
     Dosage: 50MG
  7. MICRO K [Concomitant]
     Indication: BLOOD POTASSIUM DECREASED
     Dosage: 20MG
     Route: 048

REACTIONS (14)
  - Hypokalaemia [Unknown]
  - Hyponatraemia [Unknown]
  - Anaemia [Unknown]
  - Restless legs syndrome [Recovered/Resolved]
  - Anxiety [Recovered/Resolved]
  - Agitation [Recovered/Resolved]
  - Insomnia [Recovered/Resolved]
  - Psychomotor hyperactivity [Recovered/Resolved]
  - Mood swings [Recovered/Resolved]
  - Hallucination [Recovered/Resolved]
  - Heart rate increased [Recovered/Resolved]
  - Abdominal pain upper [Recovered/Resolved]
  - Pruritus [Unknown]
  - Formication [Unknown]
